FAERS Safety Report 9610992 (Version 1)
Quarter: 2013Q4

REPORT INFORMATION
  Report Type: Spontaneous
  Country: US (occurrence: US)
  Receive Date: 20131009
  Receipt Date: 20131009
  Transmission Date: 20140711
  Serious: Yes (Hospitalization)
  Sender: FDA-Public Use
  Company Number: US-GLAXOSMITHKLINE-A1044572A

PATIENT
  Sex: Male

DRUGS (2)
  1. VENTOLIN [Suspect]
     Indication: PRODUCT USED FOR UNKNOWN INDICATION
     Route: 055
  2. NO CONCURRENT MEDICATION [Concomitant]

REACTIONS (7)
  - Dysphonia [Not Recovered/Not Resolved]
  - Palpitations [Recovered/Resolved]
  - Asthenia [Not Recovered/Not Resolved]
  - Feeling abnormal [Unknown]
  - Dyspnoea [Unknown]
  - Anxiety [Unknown]
  - Allergy to chemicals [Unknown]
